FAERS Safety Report 9437245 (Version 2)
Quarter: 2013Q3

REPORT INFORMATION
  Report Type: Report from Study
  Country: TH (occurrence: TH)
  Receive Date: 20130802
  Receipt Date: 20130808
  Transmission Date: 20140515
  Serious: No
  Sender: FDA-Public Use
  Company Number: PHHY2013TH082217

PATIENT
  Age: 72 Year
  Sex: Female

DRUGS (4)
  1. ACLASTA [Suspect]
     Indication: OSTEOPOROSIS
     Dosage: UNK
     Route: 042
  2. ACLASTA [Suspect]
     Dosage: UNK
     Route: 042
     Dates: start: 201305
  3. BIOCALM//TOLPERISONE HYDROCHLORIDE [Concomitant]
     Dosage: UNK UKN, UNK
  4. GABAPENTIN [Concomitant]
     Dosage: UNK UKN, UNK

REACTIONS (10)
  - Fall [Unknown]
  - Gait disturbance [Unknown]
  - Balance disorder [Unknown]
  - Paraesthesia [Recovering/Resolving]
  - Back pain [Not Recovered/Not Resolved]
  - Arthralgia [Not Recovered/Not Resolved]
  - Pain in extremity [Not Recovered/Not Resolved]
  - Hypoaesthesia [Recovering/Resolving]
  - Muscular weakness [Not Recovered/Not Resolved]
  - Pain [Unknown]
